FAERS Safety Report 20714237 (Version 1)
Quarter: 2022Q2

REPORT INFORMATION
  Report Type: Spontaneous
  Country: US (occurrence: None)
  Receive Date: 20220415
  Receipt Date: 20220415
  Transmission Date: 20220721
  Serious: Yes (Hospitalization)
  Sender: FDA-Public Use
  Company Number: None

PATIENT
  Age: 74 Year
  Sex: Female
  Weight: 121.5 kg

DRUGS (19)
  1. RECLAST [Suspect]
     Active Substance: ZOLEDRONIC ACID
     Indication: Osteoporosis
     Dates: start: 20220411
  2. AMLODIPINE [Concomitant]
     Active Substance: AMLODIPINE BESYLATE
  3. DICLOFENAC SODIUM [Concomitant]
     Active Substance: DICLOFENAC SODIUM
  4. LEVOTHYROXINE [Concomitant]
     Active Substance: LEVOTHYROXINE
  5. NYSTATIN [Concomitant]
     Active Substance: NYSTATIN
  6. RESTASIS [Concomitant]
     Active Substance: CYCLOSPORINE
  7. METAXALONE [Concomitant]
     Active Substance: METAXALONE
  8. PREDNISONE [Concomitant]
     Active Substance: PREDNISONE
  9. BIOTIN [Concomitant]
     Active Substance: BIOTIN
  10. CALCIUM CARBONATE [Concomitant]
     Active Substance: CALCIUM CARBONATE
  11. VITAMIN D3 [Concomitant]
     Active Substance: CHOLECALCIFEROL
  12. ZYRTEC [Concomitant]
     Active Substance: CETIRIZINE HYDROCHLORIDE
  13. HERBALS [Concomitant]
     Active Substance: HERBALS
  14. FISH OIL [Concomitant]
     Active Substance: FISH OIL
  15. MAGNESIUM OXIDE [Concomitant]
     Active Substance: MAGNESIUM OXIDE
  16. VITAMINS [Concomitant]
     Active Substance: VITAMINS
  17. SENNA [Concomitant]
     Active Substance: SENNA LEAF\SENNOSIDES\SENNOSIDES A AND B
  18. super B complex [Concomitant]
  19. ALEVE [Concomitant]
     Active Substance: NAPROXEN SODIUM

REACTIONS (4)
  - Back pain [None]
  - Muscle spasms [None]
  - Pain [None]
  - Musculoskeletal stiffness [None]

NARRATIVE: CASE EVENT DATE: 20220411
